FAERS Safety Report 4817291-5 (Version None)
Quarter: 2005Q4

REPORT INFORMATION
  Report Type: 
  Country: None (occurrence: None)
  Receive Date: 20051018
  Receipt Date: 20040907
  Transmission Date: 20060501
  Serious: Yes (Other)
  Sender: FDA-Public Use
  Company Number: PHEH2004US09598

PATIENT
  Age: 75 Year
  Sex: Male

DRUGS (18)
  1. ZOMETA [Suspect]
     Indication: OSTEOPOROSIS
     Dosage: 4 MG, QMO, INJECTION NOS
     Dates: start: 20020501, end: 20040301
  2. AREDIA [Suspect]
     Dosage: 120-90MG, QMO, Q2MO, Q3MO, INTRAVENOUS;  90 MG, QMO, INTRAVENOUS
     Route: 042
     Dates: start: 19980101, end: 20020501
  3. AREDIA [Suspect]
     Dosage: 120-90MG, QMO, Q2MO, Q3MO, INTRAVENOUS;  90 MG, QMO, INTRAVENOUS
     Route: 042
     Dates: start: 20040301
  4. FOSAMAX [Concomitant]
  5. DIGOXIN [Concomitant]
  6. PRAVACHOL [Concomitant]
  7. FLONASE [Concomitant]
  8. DECADRON [Concomitant]
  9. RAPAMUNE [Concomitant]
  10. ZYPREXA [Concomitant]
  11. LIPITOR [Concomitant]
  12. LOVENOX [Concomitant]
  13. TAMBOCOR [Concomitant]
  14. NEURONTIN [Concomitant]
  15. AMBIEN [Concomitant]
  16. ARANESP [Concomitant]
  17. ACCUTANE [Concomitant]
  18. SYNTHROID [Concomitant]

REACTIONS (3)
  - ORAL SURGERY [None]
  - OSTEONECROSIS [None]
  - TOOTH EXTRACTION [None]
